FAERS Safety Report 9530907 (Version 1)
Quarter: 2013Q2

REPORT INFORMATION
  Report Type: Spontaneous
  Country: US (occurrence: None)
  Receive Date: 20130416
  Receipt Date: 20130416
  Transmission Date: 20140414
  Serious: Yes (Other)
  Sender: FDA-Public Use
  Company Number: 2013BAX002598

PATIENT
  Age: 11 Month
  Sex: Male
  Weight: 9 kg

DRUGS (1)
  1. ADVATE [Suspect]
     Indication: FACTOR VIII DEFICIENCY
     Dosage: 400 UNITS X 2 (UNKNOWN)
     Dates: start: 20121007

REACTIONS (1)
  - Factor VIII inhibition [None]
